FAERS Safety Report 5657848-5 (Version None)
Quarter: 2008Q1

REPORT INFORMATION
  Report Type: 
  Country: None (occurrence: None)
  Receive Date: 20080305
  Receipt Date: 20080225
  Transmission Date: 20080703
  Serious: Yes (Other)
  Sender: FDA-Public Use
  Company Number: OSCN-NO-0705S-0213

PATIENT
  Age: 48 Year
  Sex: Female

DRUGS (12)
  1. OMNISCAN [Suspect]
     Indication: DRUG USE FOR UNKNOWN INDICATION
     Dosage: SINGLE DOSE
     Dates: start: 20050813, end: 20050813
  2. SACCHARATED IRON OXIDE (VENOFER) [Concomitant]
  3. FOLACIN [Concomitant]
  4. SODIUM POLYSTYRENE SULFONATE (RESONIUM) [Concomitant]
  5. CYANOCOBALAMIN (BEHEPAN) [Concomitant]
  6. PREDNISOLONE [Concomitant]
  7. AMINESS [Concomitant]
  8. TRANDATE [Concomitant]
  9. ALFACALCIDOL (ETALPHA) [Concomitant]
  10. ENOXAPARIN SODIUM [Concomitant]
  11. CALCIUM CARBONATE (CALCITUGG) [Concomitant]
  12. DOXAZOSIN MESILATE (ALFADIL) [Concomitant]

REACTIONS (2)
  - NEPHROGENIC SYSTEMIC FIBROSIS [None]
  - REFUSAL OF TREATMENT BY PATIENT [None]
